FAERS Safety Report 8030543-3 (Version None)
Quarter: 2011Q4

REPORT INFORMATION
  Report Type: 
  Country: None (occurrence: None)
  Receive Date: 20111130
  Receipt Date: 20110801
  Transmission Date: 20120403
  Serious: Yes (Hospitalization, Other)
  Sender: FDA-Public Use
  Company Number: US200910004691

PATIENT
  Age: 46 Year
  Sex: Female

DRUGS (3)
  1. BYETTA [Suspect]
     Dates: start: 20050901, end: 20060101
  2. EXENATIDE UNK STRENGTH PEN, DISPOSABLE DEVICE (EXENATIDE PEN (UNKNOWN [Concomitant]
  3. METFORMNI (METFORMIN) [Concomitant]

REACTIONS (2)
  - PANCREATITIS NECROTISING [None]
  - PANCREATITIS ACUTE [None]
